FAERS Safety Report 9795475 (Version 2)
Quarter: 2014Q1

REPORT INFORMATION
  Report Type: Spontaneous
  Country: IT (occurrence: IT)
  Receive Date: 20140103
  Receipt Date: 20140311
  Transmission Date: 20141002
  Serious: Yes (Hospitalization)
  Sender: FDA-Public Use
  Company Number: IT-MYLANLABS-2013S1028820

PATIENT
  Age: 83 Year
  Sex: Male

DRUGS (2)
  1. OLANZAPINE [Suspect]
     Indication: ABNORMAL BEHAVIOUR
     Dosage: 10 MG DAILY
     Route: 048
     Dates: start: 20131119, end: 20131204
  2. CLEXANE [Concomitant]
     Indication: PRODUCT USED FOR UNKNOWN INDICATION
     Dosage: 4000 LU

REACTIONS (3)
  - Leukopenia [Recovering/Resolving]
  - Pancytopenia [Recovering/Resolving]
  - Bone marrow failure [Recovering/Resolving]
